FAERS Safety Report 9469222 (Version 1)
Quarter: 2013Q3

REPORT INFORMATION
  Report Type: Spontaneous
  Country: US (occurrence: US)
  Receive Date: 20130821
  Receipt Date: 20130821
  Transmission Date: 20140515
  Serious: No
  Sender: FDA-Public Use
  Company Number: US-NOVEN-13US007386

PATIENT
  Age: 49 Year
  Sex: Female

DRUGS (3)
  1. MINIVELLE [Suspect]
     Indication: OESTROGEN THERAPY
     Dosage: 0.0375 MG, 2/WK
     Route: 062
     Dates: start: 20130710
  2. XANAX [Concomitant]
     Indication: PRODUCT USED FOR UNKNOWN INDICATION
     Dosage: UNK
     Route: 048
  3. SEPTRA DS [Suspect]
     Dosage: UNK
     Dates: start: 20130705, end: 20130708

REACTIONS (4)
  - Pruritus [Recovered/Resolved]
  - Rash generalised [Recovered/Resolved]
  - Off label use [Unknown]
  - Drug prescribing error [Unknown]
